FAERS Safety Report 10434595 (Version 2)
Quarter: 2014Q4

REPORT INFORMATION
  Report Type: Spontaneous
  Country: US (occurrence: US)
  Receive Date: 20140905
  Receipt Date: 20141212
  Transmission Date: 20150528
  Serious: No
  Sender: FDA-Public Use
  Company Number: US-ASTRAZENECA-2014SE66183

PATIENT
  Age: 71 Year
  Sex: Female
  Weight: 65.8 kg

DRUGS (4)
  1. NEXIUM 24HR [Suspect]
     Active Substance: ESOMEPRAZOLE MAGNESIUM
     Indication: DYSPEPSIA
     Route: 048
     Dates: start: 20140803
  2. NEXIUM 24HR [Suspect]
     Active Substance: ESOMEPRAZOLE MAGNESIUM
     Indication: DYSPEPSIA
     Route: 048
     Dates: start: 201407, end: 20140803
  3. NEXIUM 24HR [Suspect]
     Active Substance: ESOMEPRAZOLE MAGNESIUM
     Indication: DYSPEPSIA
     Route: 048
  4. VITAMIN SUPPLEMENTS [Concomitant]
     Active Substance: VITAMINS

REACTIONS (4)
  - Drug ineffective [Unknown]
  - Decreased activity [Unknown]
  - Poor quality drug administered [Unknown]
  - Dyspepsia [Unknown]

NARRATIVE: CASE EVENT DATE: 2014
